FAERS Safety Report 6518969-8 (Version None)
Quarter: 2009Q4

REPORT INFORMATION
  Report Type: 
  Country: None (occurrence: None)
  Receive Date: 20091228
  Receipt Date: 20091214
  Transmission Date: 20100525
  Serious: Yes (Hospitalization, Other)
  Sender: FDA-Public Use
  Company Number: US-BAYER-200917738BCC

PATIENT
  Sex: Female

DRUGS (1)
  1. ALEVE [Suspect]
     Indication: MIGRAINE
     Route: 048

REACTIONS (3)
  - DRUG SCREEN POSITIVE [None]
  - MIGRAINE [None]
  - URINE ANALYSIS ABNORMAL [None]
